FAERS Safety Report 17518976 (Version 1)
Quarter: 2020Q1

REPORT INFORMATION
  Report Type: Spontaneous
  Country: US (occurrence: US)
  Receive Date: 20200310
  Receipt Date: 20200310
  Transmission Date: 20200409
  Serious: Yes (Hospitalization)
  Sender: FDA-Public Use
  Company Number: US-TEVA-2020-US-1196930

PATIENT
  Age: 79 Year
  Sex: Male

DRUGS (1)
  1. ERLOTINIB [Suspect]
     Active Substance: ERLOTINIB
     Indication: LUNG ADENOCARCINOMA
     Dosage: RECENTLY STARTED
     Route: 065

REACTIONS (6)
  - Duodenitis [Recovered/Resolved]
  - Strongyloidiasis [Recovered/Resolved]
  - Oesophagitis [Recovered/Resolved]
  - Infection reactivation [Recovered/Resolved]
  - Duodenal ulcer [Recovered/Resolved]
  - Gastritis [Recovered/Resolved]
